FAERS Safety Report 4933444-X (Version None)
Quarter: 2006Q1

REPORT INFORMATION
  Report Type: 
  Country: None (occurrence: None)
  Receive Date: 20060306
  Receipt Date: 20060222
  Transmission Date: 20060701
  Serious: Yes (Hospitalization)
  Sender: FDA-Public Use
  Company Number: IT-GLAXOSMITHKLINE-B0414240A

PATIENT
  Age: 5 Year
  Sex: Female
  Weight: 1.8 kg

DRUGS (2)
  1. AMOXICILLIN AND CLAVULANATE POTASSIUM [Suspect]
     Route: 048
     Dates: start: 20060213, end: 20060213
  2. CEFTIBUTEN [Concomitant]
     Route: 065

REACTIONS (4)
  - DYSPHAGIA [None]
  - ERYTHEMA [None]
  - EYE PRURITUS [None]
  - URTICARIA [None]
